FAERS Safety Report 13328874 (Version 4)
Quarter: 2017Q2

REPORT INFORMATION
  Report Type: Spontaneous
  Country: US (occurrence: US)
  Receive Date: 20170313
  Receipt Date: 20170620
  Transmission Date: 20170830
  Serious: Yes (Life-Threatening)
  Sender: FDA-Public Use
  Company Number: US-009507513-1703USA005089

PATIENT
  Age: 67 Year
  Sex: Female

DRUGS (4)
  1. PROVENTIL [Suspect]
     Active Substance: ALBUTEROL
     Indication: DYSPNOEA
     Dosage: 2 PUFFS, Q4H (AS NEEDED)
     Route: 055
     Dates: start: 20170216, end: 20170216
  2. ZITHROMAX [Concomitant]
     Active Substance: AZITHROMYCIN DIHYDRATE
  3. PROVENTIL [Suspect]
     Active Substance: ALBUTEROL
     Indication: WHEEZING
  4. PROVENTIL [Suspect]
     Active Substance: ALBUTEROL
     Indication: COUGH

REACTIONS (2)
  - Drug ineffective [Recovered/Resolved]
  - Product quality issue [Unknown]

NARRATIVE: CASE EVENT DATE: 20170216
